FAERS Safety Report 23889113 (Version 2)
Quarter: 2024Q2

REPORT INFORMATION
  Report Type: Spontaneous
  Country: US (occurrence: None)
  Receive Date: 20240523
  Receipt Date: 20240530
  Transmission Date: 20240716
  Serious: Yes (Other)
  Sender: FDA-Public Use
  Company Number: US-FARMAPROD-202404-1193

PATIENT
  Age: 70 Year
  Sex: Female

DRUGS (19)
  1. OXERVATE [Suspect]
     Active Substance: CENEGERMIN-BKBJ
     Indication: Neurotrophic keratopathy
     Route: 047
     Dates: start: 20240329
  2. MACULAR HEALTH FORMULA [Concomitant]
  3. VITAMIN B-COMPLEX + C [Concomitant]
  4. VITAMIN C [Concomitant]
     Active Substance: ASCORBIC ACID
  5. GLUCOSAMINE [Concomitant]
     Active Substance: GLUCOSAMINE
  6. MAGNESIUM [Concomitant]
     Active Substance: MAGNESIUM
  7. COLLAGEN [Concomitant]
     Active Substance: COLLAGEN
     Dosage: 125-740MG
  8. OMEGA-3 ACIDS [Concomitant]
     Active Substance: OMEGA-3 FATTY ACIDS
  9. VITAMIN B12 [Concomitant]
     Active Substance: CYANOCOBALAMIN
  10. ZINC [Concomitant]
     Active Substance: PYRITHIONE ZINC\ZINC\ZINC CHLORIDE
  11. CALCIUM [Concomitant]
     Active Substance: CALCIUM
  12. VITAMINS [Concomitant]
     Active Substance: VITAMINS
  13. GABAPENTIN [Concomitant]
     Active Substance: GABAPENTIN
  14. ATORVASTATIN CALCIUM [Concomitant]
     Active Substance: ATORVASTATIN CALCIUM
  15. MELATONIN [Concomitant]
     Active Substance: MELATONIN
  16. OLIVE POWDER [Concomitant]
  17. PROPOLIS WAX [Concomitant]
     Active Substance: PROPOLIS WAX
  18. EYSUVIS [Concomitant]
     Active Substance: LOTEPREDNOL ETABONATE
     Indication: Dry eye
     Route: 061
  19. OPTASE [Concomitant]
     Indication: Dry eye
     Route: 061

REACTIONS (5)
  - Eye infection bacterial [Not Recovered/Not Resolved]
  - Eye pain [Not Recovered/Not Resolved]
  - Ocular hyperaemia [Unknown]
  - Eye discharge [Not Recovered/Not Resolved]
  - Eye pruritus [Unknown]

NARRATIVE: CASE EVENT DATE: 20240301
